FAERS Safety Report 6027199-8 (Version None)
Quarter: 2009Q1

REPORT INFORMATION
  Report Type: 
  Country: None (occurrence: None)
  Receive Date: 20090105
  Receipt Date: 20081222
  Transmission Date: 20090719
  Serious: Yes (Other)
  Sender: FDA-Public Use
  Company Number: GB-PFIZER INC-2008160152

PATIENT

DRUGS (5)
  1. CHAMPIX [Suspect]
     Indication: SMOKING CESSATION THERAPY
     Route: 048
     Dates: start: 20081002, end: 20081127
  2. AUGMENTIN [Concomitant]
     Dosage: UNK
     Dates: start: 20081001
  3. BECLOMETHASONE DIPROPIONATE [Concomitant]
     Indication: ASTHMA
  4. PREDNISOLONE [Concomitant]
     Route: 048
  5. SALBUTAMOL SULFATE [Concomitant]
     Indication: ASTHMA
     Route: 048

REACTIONS (3)
  - AGITATION [None]
  - HEAD DISCOMFORT [None]
  - SUICIDAL IDEATION [None]
